FAERS Safety Report 8395190-2 (Version None)
Quarter: 2012Q2

REPORT INFORMATION
  Report Type: 
  Country: None (occurrence: None)
  Receive Date: 20120530
  Receipt Date: 20120525
  Transmission Date: 20120825
  Serious: Yes (Other)
  Sender: FDA-Public Use
  Company Number: PL-B.I. PHARMACEUTICALS,INC./RIDGEFIELD-2012-BP-12527YA

PATIENT
  Age: 72 Year
  Sex: Male
  Weight: 72 kg

DRUGS (5)
  1. VALSACOR (VALSARTAN) [Concomitant]
     Route: 048
  2. TAMSULOSIN HCL [Suspect]
     Indication: BENIGN PROSTATIC HYPERPLASIA
     Dosage: 0.4 MG
     Route: 048
  3. FIREWOOD (EPILOBIUM ANGUSTIFOLIUM) [Concomitant]
     Indication: BENIGN PROSTATIC HYPERPLASIA
     Route: 048
  4. CARDURA [Concomitant]
     Indication: BENIGN PROSTATIC HYPERPLASIA
     Route: 048
  5. VALSACOR (VALSARTAN) [Concomitant]
     Indication: HYPERTENSION
     Route: 048

REACTIONS (2)
  - ANGINA PECTORIS [None]
  - PALPITATIONS [None]
